FAERS Safety Report 6015049-5 (Version None)
Quarter: 2008Q4

REPORT INFORMATION
  Report Type: 
  Country: None (occurrence: None)
  Receive Date: 20081222
  Receipt Date: 20081217
  Transmission Date: 20090506
  Serious: Yes (Other)
  Sender: FDA-Public Use
  Company Number: JP-JNJFOC-20081204914

PATIENT

DRUGS (2)
  1. ITRIZOLE [Suspect]
     Indication: ASPERGILLOSIS
     Dosage: TOOK CONTINUOSLY FOR 2 YEARS
     Route: 048
  2. ITRIZOLE [Suspect]
     Route: 041

REACTIONS (2)
  - PNEUMONIA ASPIRATION [None]
  - PYREXIA [None]
